FAERS Safety Report 8009577-0 (Version None)
Quarter: 2011Q4

REPORT INFORMATION
  Report Type: 
  Country: None (occurrence: None)
  Receive Date: 20111228
  Receipt Date: 20111212
  Transmission Date: 20120403
  Serious: Yes (Other)
  Sender: FDA-Public Use
  Company Number: JP-BRISTOL-MYERS SQUIBB COMPANY-16265829

PATIENT
  Age: 67 Year
  Sex: Female
  Weight: 52 kg

DRUGS (14)
  1. CORINAEL L [Concomitant]
     Dosage: CORINAEL CR
     Route: 048
     Dates: start: 20111111
  2. PERINDOPRIL ERBUMINE [Concomitant]
     Dosage: MORN
  3. AMARYL [Concomitant]
     Dosage: INCREASED TO 2 MG(6NV11), DECREASED TO 1 TABS/DAY(11NV11) ALSO TAKEN AS BID 1MG ON 7NOV11
     Route: 048
     Dates: start: 20111111
  4. GLIMEPIRIDE [Concomitant]
     Route: 048
     Dates: start: 20111111
  5. LASIX [Concomitant]
     Dosage: MOR
  6. ARIMIDEX [Concomitant]
     Route: 048
  7. LANSOPRAZOLE [Concomitant]
     Route: 048
     Dates: start: 20111111
  8. ADALAT [Concomitant]
  9. BUP-4 [Concomitant]
     Route: 048
     Dates: start: 20111111
  10. ENALAPRIL MALEATE [Concomitant]
     Route: 048
     Dates: start: 20111111
  11. ETIZOLAM [Concomitant]
     Route: 048
     Dates: start: 20111111
  12. AMLODIPINE [Concomitant]
     Dosage: MORN
  13. METFORMIN HCL [Suspect]
     Indication: DIABETES MELLITUS
     Dosage: DOSE:250MG(REDUCED DOSE).RESTATED:22-NOV-2011-STOPPED.
     Route: 048
     Dates: start: 20111111, end: 20111116
  14. NIFEDIPINE [Concomitant]
     Dosage: EVENING

REACTIONS (5)
  - EYE PAIN [None]
  - CATARACT [None]
  - DIABETIC RETINOPATHY [None]
  - THIRST [None]
  - DRY EYE [None]
